FAERS Safety Report 24899338 (Version 1)
Quarter: 2025Q1

REPORT INFORMATION
  Report Type: Spontaneous
  Country: US (occurrence: None)
  Receive Date: 20250128
  Receipt Date: 20250128
  Transmission Date: 20250409
  Serious: No
  Sender: FDA-CTU
  Company Number: None

PATIENT
  Age: 77 Year
  Sex: Female

DRUGS (1)
  1. IMATINIB [Suspect]
     Active Substance: IMATINIB

REACTIONS (6)
  - Hypophagia [None]
  - Laboratory test abnormal [None]
  - Bacteraemia [None]
  - Asthenia [None]
  - Fistula [None]
  - Haemorrhage [None]

NARRATIVE: CASE EVENT DATE: 20250128
